FAERS Safety Report 5807660-9 (Version None)
Quarter: 2008Q3

REPORT INFORMATION
  Report Type: 
  Country: None (occurrence: None)
  Receive Date: 20080711
  Receipt Date: 20080630
  Transmission Date: 20090109
  Serious: Yes (Other)
  Sender: FDA-Public Use
  Company Number: NL-ROCHE-573683

PATIENT
  Age: 55 Year
  Sex: Male

DRUGS (1)
  1. MIRCERA [Suspect]
     Route: 042
     Dates: start: 20080601

REACTIONS (3)
  - ERYTHEMA [None]
  - SENSORY DISTURBANCE [None]
  - THROAT TIGHTNESS [None]
